FAERS Safety Report 8422461-3 (Version None)
Quarter: 2012Q2

REPORT INFORMATION
  Report Type: 
  Country: None (occurrence: None)
  Receive Date: 20120608
  Receipt Date: 20120529
  Transmission Date: 20120825
  Serious: Yes (Death)
  Sender: FDA-Public Use
  Company Number: DK-TEVA-327089ISR

PATIENT
  Sex: Female

DRUGS (17)
  1. MABTHERA [Suspect]
     Indication: DIFFUSE LARGE B-CELL LYMPHOMA
     Dosage: 375 MG/M2 EVERY 21 DAYS
     Route: 042
     Dates: start: 20110125, end: 20110501
  2. RASBURICASE [Concomitant]
     Indication: TUMOUR LYSIS SYNDROME
     Dosage: 12 MILLIGRAM;
     Dates: start: 20120124, end: 20120124
  3. FUROSEMIDE [Concomitant]
     Indication: DIURETIC THERAPY
     Dosage: 80 MILLIGRAM;
  4. BISOPROLOL FUMARATE [Concomitant]
     Indication: HYPERTENSION
  5. CYCLOPHOSPHAMIDE [Suspect]
     Indication: DIFFUSE LARGE B-CELL LYMPHOMA
     Route: 042
     Dates: start: 20110125, end: 20110501
  6. LANSOPRAZOLE [Concomitant]
     Indication: GASTROOESOPHAGEAL REFLUX DISEASE
  7. ETOPOSIDE [Suspect]
     Indication: DIFFUSE LARGE B-CELL LYMPHOMA
     Route: 042
     Dates: start: 20110125, end: 20110501
  8. PERINDOPRIL ERBUMINE [Concomitant]
     Indication: HYPERTENSION
     Dosage: 5 MILLIGRAM;
  9. WARFARIN SODIUM [Concomitant]
     Indication: ANTICOAGULANT THERAPY
  10. FERRO DURETTER [Concomitant]
     Indication: MINERAL SUPPLEMENTATION
  11. VITAMIN D [Concomitant]
     Indication: SUPPLEMENTATION THERAPY
  12. PREDNISOLONE [Suspect]
     Indication: DIFFUSE LARGE B-CELL LYMPHOMA
     Route: 042
     Dates: start: 20110125, end: 20110501
  13. PENOMAX [Concomitant]
     Indication: CYSTITIS
     Dosage: 1200 MILLIGRAM;
     Dates: start: 20120129
  14. SYMBICORT [Concomitant]
     Indication: LUNG DISORDER
  15. CITALOPRAM HYDROBROMIDE [Concomitant]
     Indication: DEPRESSION
     Dosage: 40 MILLIGRAM;
  16. ONCOVIN [Suspect]
     Indication: DIFFUSE LARGE B-CELL LYMPHOMA
     Route: 042
     Dates: start: 20110125, end: 20110501
  17. CODEINE SULFATE [Concomitant]
     Indication: ANALGESIC THERAPY

REACTIONS (2)
  - HEPATIC FAILURE [None]
  - HEPATITIS B [None]
